FAERS Safety Report 25811887 (Version 1)
Quarter: 2025Q3

REPORT INFORMATION
  Report Type: Spontaneous
  Country: EU (occurrence: EU)
  Receive Date: 20250917
  Receipt Date: 20250917
  Transmission Date: 20251021
  Serious: Yes (Life-Threatening, Other)
  Sender: SANDOZ
  Company Number: EU-PFIZER INC-202500178382

PATIENT
  Age: 61 Year
  Sex: Female

DRUGS (1)
  1. TOPOTECAN HYDROCHLORIDE [Suspect]
     Active Substance: TOPOTECAN HYDROCHLORIDE
     Indication: Ovarian cancer stage IV
     Route: 065
     Dates: start: 202104, end: 202106

REACTIONS (2)
  - Neutropenia [Unknown]
  - Anaemia [Unknown]
